FAERS Safety Report 7956518-8 (Version None)
Quarter: 2011Q4

REPORT INFORMATION
  Report Type: 
  Country: None (occurrence: None)
  Receive Date: 20111201
  Receipt Date: 20111121
  Transmission Date: 20120403
  Serious: Yes (Disabling)
  Sender: FDA-Public Use
  Company Number: 1114875

PATIENT
  Sex: Female
  Weight: 89 kg

DRUGS (2)
  1. METHOTREXATE [Suspect]
     Indication: RHEUMATOID ARTHRITIS
  2. ENBREL [Suspect]
     Indication: RHEUMATOID ARTHRITIS
     Dosage: 50 MG MILLIGRAM (S), 1 WEEK, SUBCUTANEOUS
     Route: 058
     Dates: start: 20030926, end: 20090930

REACTIONS (1)
  - PULMONARY SARCOIDOSIS [None]
